FAERS Safety Report 16487994 (Version 1)
Quarter: 2019Q2

REPORT INFORMATION
  Report Type: Spontaneous
  Country: FR (occurrence: FR)
  Receive Date: 20190627
  Receipt Date: 20190627
  Transmission Date: 20190711
  Serious: Yes (Hospitalization)
  Sender: FDA-Public Use
  Company Number: FR-MYLANLABS-2019M1059461

PATIENT
  Age: 82 Year
  Sex: Female
  Weight: 60 kg

DRUGS (3)
  1. AMOXICILLINE ARROW [Concomitant]
     Active Substance: AMOXICILLIN
     Indication: PAROTITIS
     Dosage: 3 GRAM, QD
     Route: 048
     Dates: start: 20181026, end: 20181028
  2. DOLIPRANE [Concomitant]
     Active Substance: ACETAMINOPHEN
     Indication: PAROTITIS
     Dosage: 1000 MILLIGRAM, PRN
     Route: 048
     Dates: start: 20181026, end: 20181028
  3. IBUPROFEN MYLAN 400 MG [Suspect]
     Active Substance: IBUPROFEN
     Indication: PAROTITIS
     Dosage: 1200 MILLIGRAM, QD
     Route: 048
     Dates: start: 20181026, end: 20181028

REACTIONS (1)
  - Cellulitis [Recovered/Resolved with Sequelae]

NARRATIVE: CASE EVENT DATE: 20181028
